FAERS Safety Report 16207267 (Version 1)
Quarter: 2019Q2

REPORT INFORMATION
  Report Type: Spontaneous
  Country: US (occurrence: US)
  Receive Date: 20190417
  Receipt Date: 20190417
  Transmission Date: 20190711
  Serious: Yes (Hospitalization, Other)
  Sender: FDA-Public Use
  Company Number: US-APOTEX-2019AP011948

PATIENT
  Age: 43 Year
  Sex: Male

DRUGS (1)
  1. ENOXAPARIN [Suspect]
     Active Substance: ENOXAPARIN
     Indication: VENOUS THROMBOSIS
     Dosage: ( 1 MG/KG ) TWICE DAILY
     Route: 058

REACTIONS (1)
  - Thrombocytopenia [Unknown]
